FAERS Safety Report 4973296-5 (Version None)
Quarter: 2006Q2

REPORT INFORMATION
  Report Type: 
  Country: None (occurrence: None)
  Receive Date: 20060414
  Receipt Date: 20041216
  Transmission Date: 20061013
  Serious: Yes (Hospitalization)
  Sender: FDA-Public Use
  Company Number: US-MERCK-0412USA02135

PATIENT
  Age: 47 Year
  Sex: Male
  Weight: 118 kg

DRUGS (1)
  1. VIOXX [Suspect]
     Route: 048

REACTIONS (4)
  - ARTHROPATHY [None]
  - CORONARY ARTERY OCCLUSION [None]
  - HERNIA [None]
  - MYOCARDIAL INFARCTION [None]
